FAERS Safety Report 7361316-2 (Version None)
Quarter: 2011Q1

REPORT INFORMATION
  Report Type: 
  Country: None (occurrence: None)
  Receive Date: 20110318
  Receipt Date: 20110316
  Transmission Date: 20110831
  Serious: Yes (Hospitalization)
  Sender: FDA-Public Use
  Company Number: B0677703A

PATIENT
  Sex: Female

DRUGS (10)
  1. ATARAX [Concomitant]
     Route: 065
  2. DROPERIDOL [Concomitant]
     Indication: PREOPERATIVE CARE
     Route: 065
  3. AUGMENTIN '125' [Suspect]
     Indication: ANTIBIOTIC PROPHYLAXIS
     Route: 042
     Dates: start: 20100806, end: 20100806
  4. DESOGESTREL [Concomitant]
     Dosage: 20MCG UNKNOWN
     Route: 065
  5. SUFENTANIL CITRATE [Suspect]
     Route: 042
     Dates: start: 20100806, end: 20100806
  6. PROPOFOL [Suspect]
     Route: 042
     Dates: start: 20100806, end: 20100806
  7. ACETAMINOPHEN [Concomitant]
     Route: 065
  8. ZANTAC [Concomitant]
     Route: 065
  9. SUPRANE [Suspect]
     Dosage: .3PCT SINGLE DOSE
     Route: 055
     Dates: start: 20100806, end: 20100806
  10. TOPALGIC (FRANCE) [Concomitant]
     Indication: PREOPERATIVE CARE
     Route: 065

REACTIONS (2)
  - RASH [None]
  - HYPOTENSION [None]
